FAERS Safety Report 16855941 (Version 1)
Quarter: 2019Q3

REPORT INFORMATION
  Report Type: Spontaneous
  Country: CR (occurrence: CR)
  Receive Date: 20190926
  Receipt Date: 20190926
  Transmission Date: 20191005
  Serious: Yes (Other)
  Sender: FDA-Public Use
  Company Number: CR-ROCHE-2408588

PATIENT
  Age: 79 Year
  Sex: Male

DRUGS (1)
  1. RITUXIMAB. [Suspect]
     Active Substance: RITUXIMAB
     Indication: PRODUCT USED FOR UNKNOWN INDICATION
     Route: 065

REACTIONS (5)
  - Tremor [Unknown]
  - Chills [Unknown]
  - Hypoxia [Unknown]
  - Bradycardia [Unknown]
  - Hypertension [Unknown]
